FAERS Safety Report 7249621-1 (Version None)
Quarter: 2011Q1

REPORT INFORMATION
  Report Type: 
  Country: None (occurrence: None)
  Receive Date: 20110128
  Receipt Date: 20101215
  Transmission Date: 20110831
  Serious: Yes (Other)
  Sender: FDA-Public Use
  Company Number: US-BAYER-201029401NA

PATIENT
  Sex: Female
  Weight: 72.562 kg

DRUGS (3)
  1. YAZ [Suspect]
     Indication: CONTRACEPTION
     Dosage: UNK UNK, QD
     Dates: start: 20061001, end: 20070627
  2. YASMIN [Suspect]
     Indication: CONTRACEPTION
     Dates: start: 20061101
  3. NAPROSYN [Concomitant]
     Dosage: UNK UNK, BID

REACTIONS (4)
  - DEEP VEIN THROMBOSIS [None]
  - OEDEMA PERIPHERAL [None]
  - DEPRESSION [None]
  - ANXIETY [None]
